FAERS Safety Report 5973648-0 (Version None)
Quarter: 2008Q4

REPORT INFORMATION
  Report Type: 
  Country: None (occurrence: None)
  Receive Date: 20081201
  Receipt Date: 20081117
  Transmission Date: 20090506
  Serious: Yes (Hospitalization)
  Sender: FDA-Public Use
  Company Number: FR-SANOFI-SYNTHELABO-A02200803454

PATIENT
  Sex: Female

DRUGS (6)
  1. SEROPLEX [Suspect]
     Route: 048
  2. VERATRAN [Suspect]
     Route: 048
     Dates: end: 20080701
  3. ZOLPIDEM [Suspect]
     Route: 048
  4. DOLIPRANE [Concomitant]
     Dosage: UNK
     Route: 065
  5. ELISOR [Concomitant]
     Dosage: UNK
     Route: 065
  6. BIPRETERAX [Suspect]
     Route: 048

REACTIONS (2)
  - FACIAL BONES FRACTURE [None]
  - FALL [None]
